FAERS Safety Report 12049407 (Version 1)
Quarter: 2016Q1

REPORT INFORMATION
  Report Type: Report from Study
  Country: CA (occurrence: CA)
  Receive Date: 20160208
  Receipt Date: 20160208
  Transmission Date: 20160526
  Serious: Yes (Hospitalization)
  Sender: FDA-Public Use
  Company Number: CA-ABBVIE-16K-028-1553362-00

PATIENT
  Sex: Female

DRUGS (2)
  1. HUMIRA [Suspect]
     Active Substance: ADALIMUMAB
     Indication: RHEUMATOID ARTHRITIS
     Route: 058
     Dates: start: 20150501
  2. ANCEF [Concomitant]
     Active Substance: CEFAZOLIN SODIUM
     Indication: INFECTION
     Route: 048

REACTIONS (2)
  - Cardiac murmur [Unknown]
  - Endocarditis [Unknown]
